FAERS Safety Report 7470094-8 (Version None)
Quarter: 2011Q2

REPORT INFORMATION
  Report Type: 
  Country: None (occurrence: None)
  Receive Date: 20110510
  Receipt Date: 20100604
  Transmission Date: 20111010
  Serious: Yes (Hospitalization)
  Sender: FDA-Public Use
  Company Number: A0864156A

PATIENT
  Age: 57 Year

DRUGS (2)
  1. AVANDIA [Suspect]
     Route: 048
     Dates: start: 20010814, end: 20070422
  2. AVANDARYL [Suspect]
     Route: 048
     Dates: start: 20061116, end: 20070122

REACTIONS (1)
  - CEREBROVASCULAR ACCIDENT [None]
